FAERS Safety Report 8501513-3 (Version None)
Quarter: 2012Q3

REPORT INFORMATION
  Report Type: 
  Country: None (occurrence: None)
  Receive Date: 20120710
  Receipt Date: 20120702
  Transmission Date: 20120928
  Serious: Yes (Hospitalization, Other)
  Sender: FDA-Public Use
  Company Number: FI-ABBOTT-12P-055-0952120-00

PATIENT
  Sex: Female

DRUGS (5)
  1. METHOTREXATE [Concomitant]
     Indication: PRODUCT USED FOR UNKNOWN INDICATION
     Dosage: PAUSED
     Dates: start: 20120419, end: 20120621
  2. HUMIRA [Suspect]
     Indication: RHEUMATOID ARTHRITIS
     Dosage: EVERY OTHER WEEK (PAUSED)
     Route: 058
     Dates: start: 20120419, end: 20120621
  3. ROCEPHIN [Suspect]
     Indication: ERYSIPELAS
     Route: 042
  4. REKO [Concomitant]
     Indication: PRODUCT USED FOR UNKNOWN INDICATION
     Dates: start: 20111209
  5. PENICILLIN V [Suspect]
     Indication: ERYSIPELAS

REACTIONS (6)
  - C-REACTIVE PROTEIN INCREASED [None]
  - MOUTH HAEMORRHAGE [None]
  - SYSTEMIC LUPUS ERYTHEMATOSUS [None]
  - PETECHIAE [None]
  - PYREXIA [None]
  - ERYSIPELAS [None]
